FAERS Safety Report 23786281 (Version 1)
Quarter: 2024Q2

REPORT INFORMATION
  Report Type: Spontaneous
  Country: DE (occurrence: DE)
  Receive Date: 20240426
  Receipt Date: 20240426
  Transmission Date: 20240716
  Serious: Yes (Other)
  Sender: FDA-Public Use
  Company Number: DE-Vifor (International) Inc.-VIT-2024-03423

PATIENT

DRUGS (2)
  1. TAVNEOS [Suspect]
     Active Substance: AVACOPAN
     Indication: Anti-neutrophil cytoplasmic antibody positive vasculitis
  2. PREDNISOLONE [Concomitant]
     Active Substance: PREDNISOLONE
     Dosage: THE CUMULATIVE PREDNISOLONE DOSE OVER 52 WEEKS WAS 3229 MG.

REACTIONS (2)
  - Leukopenia [Unknown]
  - Pyrexia [Unknown]
